FAERS Safety Report 4315520-8 (Version None)
Quarter: 2004Q1

REPORT INFORMATION
  Report Type: 
  Country: None (occurrence: None)
  Receive Date: 20040311
  Receipt Date: 19990712
  Transmission Date: 20041129
  Serious: Yes (Hospitalization)
  Sender: FDA-Public Use
  Company Number: US-ROCHE-210608

PATIENT
  Age: 16 Year
  Sex: Female
  Weight: 52.2 kg

DRUGS (7)
  1. ACCUTANE [Suspect]
     Dosage: 10MG AM AND 40MG PM
     Route: 048
     Dates: start: 19961117, end: 19970706
  2. ACCUTANE [Suspect]
     Route: 048
     Dates: start: 19970915, end: 19980215
  3. PAXIL [Concomitant]
     Indication: DEPRESSION
     Route: 048
     Dates: start: 19961206
  4. ORTHO TRI-CYCLEN [Concomitant]
     Route: 048
     Dates: start: 19961115
  5. CLARITIN [Concomitant]
  6. NASACORT [Concomitant]
  7. DIFFERIN [Concomitant]

REACTIONS (80)
  - ABDOMINAL PAIN UPPER [None]
  - ACCIDENT [None]
  - ACQUIRED NIGHT BLINDNESS [None]
  - ACTIVATED PARTIAL THROMBOPLASTIN TIME SHORTENED [None]
  - AGITATION [None]
  - ANALGESIC DRUG LEVEL INCREASED [None]
  - ANGER [None]
  - ANKLE FRACTURE [None]
  - ANXIETY [None]
  - ARTHRALGIA [None]
  - BACK PAIN [None]
  - BIPOLAR DISORDER [None]
  - BLOOD PHOSPHORUS DECREASED [None]
  - BLOOD UREA DECREASED [None]
  - CHEILITIS [None]
  - CHILLS [None]
  - CONCUSSION [None]
  - CONJUNCTIVITIS [None]
  - CONTUSION [None]
  - COUGH [None]
  - CYSTITIS [None]
  - DEPRESSED MOOD [None]
  - DEPRESSION [None]
  - DIARRHOEA [None]
  - DRUG INEFFECTIVE [None]
  - DYSARTHRIA [None]
  - DYSPEPSIA [None]
  - DYSPHAGIA [None]
  - DYSPNOEA [None]
  - EYE PRURITUS [None]
  - EYE SWELLING [None]
  - FACIAL PAIN [None]
  - FATIGUE [None]
  - FEELING ABNORMAL [None]
  - FLAT AFFECT [None]
  - GAIT DISTURBANCE [None]
  - HALLUCINATION [None]
  - HEADACHE [None]
  - HEPATIC ENZYME INCREASED [None]
  - HOARSENESS [None]
  - HYPERCHOLESTEROLAEMIA [None]
  - HYPERTRIGLYCERIDAEMIA [None]
  - HYPOTENSION [None]
  - IMPULSIVE BEHAVIOUR [None]
  - INFECTIOUS MONONUCLEOSIS [None]
  - IRRITABILITY [None]
  - JOINT SWELLING [None]
  - JUDGEMENT IMPAIRED [None]
  - KERATOCONJUNCTIVITIS SICCA [None]
  - LIP DRY [None]
  - LYMPHADENOPATHY [None]
  - MENORRHAGIA [None]
  - MOOD SWINGS [None]
  - MYDRIASIS [None]
  - NASAL DRYNESS [None]
  - NASAL OEDEMA [None]
  - NASOPHARYNGITIS [None]
  - NAUSEA [None]
  - NIGHT SWEATS [None]
  - PAIN [None]
  - PANIC ATTACK [None]
  - PERSONALITY CHANGE [None]
  - PHARYNGITIS [None]
  - PHARYNGOLARYNGEAL PAIN [None]
  - PO2 INCREASED [None]
  - POST-TRAUMATIC STRESS DISORDER [None]
  - PRURITUS [None]
  - PSYCHOMOTOR HYPERACTIVITY [None]
  - PYREXIA [None]
  - RHINITIS ALLERGIC [None]
  - ROAD TRAFFIC ACCIDENT [None]
  - SINUSITIS [None]
  - SLUGGISHNESS [None]
  - SNORING [None]
  - SOMNOLENCE [None]
  - SUICIDAL IDEATION [None]
  - SUICIDE ATTEMPT [None]
  - TONSILLITIS [None]
  - WEIGHT DECREASED [None]
  - WHITE BLOOD CELL COUNT INCREASED [None]
